FAERS Safety Report 7425292-6 (Version None)
Quarter: 2011Q2

REPORT INFORMATION
  Report Type: 
  Country: None (occurrence: None)
  Receive Date: 20110414
  Receipt Date: 20110329
  Transmission Date: 20111010
  Serious: Yes (Other)
  Sender: FDA-Public Use
  Company Number: 029748

PATIENT
  Sex: Female

DRUGS (4)
  1. NASONEX [Concomitant]
  2. RINDERON-VG [Concomitant]
  3. XYZAL [Suspect]
     Indication: RHINITIS ALLERGIC
     Dosage: (5 MG QD ORAL)
     Route: 048
     Dates: start: 20110301, end: 20110303
  4. PATANOL [Concomitant]

REACTIONS (1)
  - METRORRHAGIA [None]
